FAERS Safety Report 16887576 (Version 5)
Quarter: 2020Q2

REPORT INFORMATION
  Report Type: Spontaneous
  Country: US (occurrence: US)
  Receive Date: 20191005
  Receipt Date: 20200408
  Transmission Date: 20200713
  Serious: Yes (Hospitalization, Other)
  Sender: FDA-Public Use
  Company Number: US-UNITED THERAPEUTICS-UNT-2019-016494

PATIENT
  Age: 56 Year
  Sex: Male
  Weight: 133.79 kg

DRUGS (3)
  1. XARELTO [Concomitant]
     Active Substance: RIVAROXABAN
     Indication: PRODUCT USED FOR UNKNOWN INDICATION
     Route: 065
  2. REMODULIN [Suspect]
     Active Substance: TREPROSTINIL
     Dosage: 0.073 ?G/KG, CONTINUING
     Route: 058
  3. REMODULIN [Suspect]
     Active Substance: TREPROSTINIL
     Indication: PULMONARY ARTERIAL HYPERTENSION
     Dosage: 0.070 ?G/KG, CONTINUING
     Route: 058
     Dates: start: 20180309

REACTIONS (7)
  - Leukaemia [Unknown]
  - Arthralgia [Unknown]
  - Constipation [Unknown]
  - Depressed mood [Unknown]
  - Fluid retention [Unknown]
  - Platelet count decreased [Unknown]
  - Pain [Unknown]

NARRATIVE: CASE EVENT DATE: 20190930
